FAERS Safety Report 9322408 (Version 1)
Quarter: 2013Q2

REPORT INFORMATION
  Report Type: Spontaneous
  Country: JP (occurrence: JP)
  Receive Date: 20130531
  Receipt Date: 20130531
  Transmission Date: 20140414
  Serious: Yes (Other)
  Sender: FDA-Public Use
  Company Number: JP-ASTRAZENECA-2013SE37090

PATIENT
  Age: 85 Year
  Sex: Male

DRUGS (4)
  1. CRESTOR [Suspect]
     Indication: HYPERCHOLESTEROLAEMIA
     Route: 048
     Dates: start: 2007, end: 20130523
  2. WARFARIN [Concomitant]
     Dosage: DOSE UNKNOWN
     Route: 048
     Dates: start: 2007
  3. PERSANTIN [Concomitant]
     Dosage: DOSE UNKNOWN
     Route: 065
     Dates: start: 2007
  4. COIX SEED [Concomitant]
     Dosage: DOSE UNKNOWN
     Route: 048
     Dates: start: 2011

REACTIONS (1)
  - White blood cell count decreased [Unknown]
